FAERS Safety Report 19910737 (Version 2)
Quarter: 2021Q4

REPORT INFORMATION
  Report Type: Report from Study
  Country: US (occurrence: US)
  Receive Date: 20211004
  Receipt Date: 20211028
  Transmission Date: 20220304
  Serious: Yes (Hospitalization)
  Sender: FDA-Public Use
  Company Number: US-BIOGEN-2021BI01053280

PATIENT
  Sex: Male
  Weight: 15.71 kg

DRUGS (1)
  1. SPINRAZA [Suspect]
     Active Substance: NUSINERSEN
     Indication: Spinal muscular atrophy
     Dosage: INJECT 5 ML (12 MG TOTAL) INTRATHECALLY EVERY 4 MONTHS AS DIRECTED.
     Route: 037

REACTIONS (3)
  - Scoliosis [Recovered/Resolved]
  - Post procedural complication [Unknown]
  - Fluid retention [Unknown]
